FAERS Safety Report 18109040 (Version 3)
Quarter: 2020Q3

REPORT INFORMATION
  Report Type: Spontaneous
  Country: US (occurrence: US)
  Receive Date: 20200804
  Receipt Date: 20200826
  Transmission Date: 20201103
  Serious: No
  Sender: FDA-Public Use
  Company Number: US-PFIZER INC-2020294518

PATIENT
  Age: 63 Year
  Sex: Female

DRUGS (1)
  1. XALKORI [Suspect]
     Active Substance: CRIZOTINIB
     Dosage: 250 MG, 2X/DAY {XALKORI 250 MG BID (TWO TIMES A DAY) QUANTITY: 30}

REACTIONS (4)
  - Muscle tightness [Unknown]
  - Pain in extremity [Unknown]
  - Back disorder [Unknown]
  - Sciatic nerve injury [Unknown]

NARRATIVE: CASE EVENT DATE: 2020
